FAERS Safety Report 5394956-0 (Version None)
Quarter: 2007Q3

REPORT INFORMATION
  Report Type: 
  Country: None (occurrence: None)
  Receive Date: 20070724
  Receipt Date: 20070716
  Transmission Date: 20080115
  Serious: Yes (Other)
  Sender: FDA-Public Use
  Company Number: PHRM2007FR01824

PATIENT
  Age: 42 Year
  Sex: Female
  Weight: 70 kg

DRUGS (6)
  1. LAROXYL [Suspect]
     Indication: DEPRESSION
     Dosage: 25 MG, QD
     Route: 048
     Dates: end: 20070401
  2. SULFARLEM [Suspect]
     Dosage: 150 MG/DAY
     Route: 048
     Dates: end: 20070509
  3. PRAXINOR [Suspect]
     Dosage: 2 DF/DAY
     Route: 048
     Dates: end: 20070417
  4. FORLAX [Suspect]
     Dosage: 2 DF/DAY
     Dates: end: 20070301
  5. DEBRIDAT ^PARKE DAVIS^ [Suspect]
     Dosage: 2 DF/DAY
     Route: 048
     Dates: start: 20070213, end: 20070313
  6. TRILEPTAL [Suspect]
     Indication: DEPRESSION
     Dosage: 150 MG, BID
     Route: 048
     Dates: end: 20070629

REACTIONS (2)
  - DRUG EXPOSURE DURING PREGNANCY [None]
  - PREGNANCY WITH CONTRACEPTIVE DEVICE [None]
